FAERS Safety Report 18353027 (Version 1)
Quarter: 2020Q4

REPORT INFORMATION
  Report Type: Spontaneous
  Country: US (occurrence: US)
  Receive Date: 20201006
  Receipt Date: 20201006
  Transmission Date: 20210114
  Serious: No
  Sender: FDA-Public Use
  Company Number: US-ALLERGAN-2009751US

PATIENT
  Age: 61 Year
  Sex: Female

DRUGS (3)
  1. MACROBID [Concomitant]
     Active Substance: NITROFURANTOIN\NITROFURANTOIN MONOHYDRATE
     Indication: URINARY TRACT INFECTION
     Dosage: UNK
  2. SYMBICORT [Concomitant]
     Active Substance: BUDESONIDE\FORMOTEROL FUMARATE DIHYDRATE
     Indication: ASTHMA
     Dosage: UNK
     Dates: start: 2019
  3. LINZESS [Suspect]
     Active Substance: LINACLOTIDE
     Indication: IRRITABLE BOWEL SYNDROME
     Dosage: 145 ?G
     Route: 048
     Dates: start: 20200201, end: 20200224

REACTIONS (15)
  - Lip pain [Recovered/Resolved]
  - Back pain [Recovered/Resolved]
  - Lip swelling [Recovered/Resolved]
  - Arthralgia [Recovered/Resolved]
  - Lip exfoliation [Recovered/Resolved]
  - Skin fissures [Recovered/Resolved]
  - Lip dry [Recovered/Resolved]
  - Constipation [Unknown]
  - Therapeutic response decreased [Unknown]
  - Hypersensitivity [Recovered/Resolved]
  - Lip erythema [Recovered/Resolved]
  - Feeling hot [Not Recovered/Not Resolved]
  - Tension headache [Recovered/Resolved]
  - Oral discomfort [Not Recovered/Not Resolved]
  - Chapped lips [Recovered/Resolved]

NARRATIVE: CASE EVENT DATE: 202002
